FAERS Safety Report 5955338-3 (Version None)
Quarter: 2008Q4

REPORT INFORMATION
  Report Type: 
  Country: None (occurrence: None)
  Receive Date: 20081117
  Receipt Date: 20081110
  Transmission Date: 20090506
  Serious: Yes (Hospitalization)
  Sender: FDA-Public Use
  Company Number: JP-ASTRAZENECA-2008AP08272

PATIENT
  Age: 79 Year
  Sex: Female

DRUGS (4)
  1. MEROPEN [Suspect]
     Indication: PNEUMONIA
     Route: 042
     Dates: start: 20080804, end: 20080805
  2. CEZ [Concomitant]
     Indication: PNEUMONIA
     Route: 042
     Dates: start: 20080725, end: 20080801
  3. DOPAMINE HYDROCHLORIDE [Concomitant]
     Indication: SHOCK
     Route: 042
     Dates: start: 20080730
  4. TAZOCIN [Concomitant]
     Indication: PNEUMONIA
     Route: 042
     Dates: start: 20080801, end: 20080804

REACTIONS (1)
  - THROMBOCYTOPENIA [None]
